FAERS Safety Report 14784424 (Version 3)
Quarter: 2018Q3

REPORT INFORMATION
  Report Type: Report from Study
  Country: CN (occurrence: CN)
  Receive Date: 20180420
  Receipt Date: 20180913
  Transmission Date: 20181010
  Serious: Yes (Other)
  Sender: FDA-Public Use
  Company Number: CN-ASTELLAS-2018US000038

PATIENT
  Age: 60 Year
  Sex: Female
  Weight: 45 kg

DRUGS (6)
  1. BEVACIZUMAB. [Suspect]
     Active Substance: BEVACIZUMAB
     Dosage: 735 MG, EVERY 3 WEEKS (DATE OF LAST DOSE PRIOR TO ADVERSE EVENT: 30/MAR/2017.DOSAGE FORM: IVGTT)
     Route: 041
     Dates: start: 20170330
  2. BEVACIZUMAB. [Suspect]
     Active Substance: BEVACIZUMAB
     Dosage: 735 MG, EVERY 3 WEEKS (DATE OF LAST DOSE PRIOR TO ADVERSE EVENT: 30/MAR/2017.DOSAGE FORM: IVGTT)
     Route: 041
     Dates: start: 20170309
  3. ERLOTINIB [Suspect]
     Active Substance: ERLOTINIB
     Indication: LUNG NEOPLASM MALIGNANT
     Dosage: 150 MG, ONCE DAILY (DATE OF LAST DOSE PRIOR TO ADVERSE EVENT: 18/APR/2017.)
     Route: 048
     Dates: start: 20170126, end: 20170308
  4. ERLOTINIB [Suspect]
     Active Substance: ERLOTINIB
     Dosage: 150 MG, ONCE DAILY (DATE OF LAST DOSE PRIOR TO ADVERSE EVENT: 18/APR/2017.)
     Route: 048
     Dates: start: 20170309
  5. BEVACIZUMAB. [Suspect]
     Active Substance: BEVACIZUMAB
     Dosage: 735 MG, EVERY 3 WEEKS (DATE OF LAST DOSE PRIOR TO ADVERSE EVENT: 30/MAR/2017.DOSAGE FORM: IVGTT)
     Route: 041
     Dates: start: 20170216
  6. BEVACIZUMAB. [Suspect]
     Active Substance: BEVACIZUMAB
     Indication: LUNG NEOPLASM MALIGNANT
     Dosage: 735 MG, EVERY 3 WEEKS (DATE OF LAST DOSE PRIOR TO ADVERSE EVENT: 30/MAR/2017.DOSAGE FORM: IVGTT)
     Route: 041
     Dates: start: 20170126

REACTIONS (1)
  - Proteinuria [Recovered/Resolved]

NARRATIVE: CASE EVENT DATE: 20170419
